FAERS Safety Report 24525908 (Version 2)
Quarter: 2024Q4

REPORT INFORMATION
  Report Type: Spontaneous
  Country: US (occurrence: US)
  Receive Date: 20241020
  Receipt Date: 20241105
  Transmission Date: 20250115
  Serious: Yes (Disabling, Other)
  Sender: AMGEN
  Company Number: US-AMGEN-USASP2024204303

PATIENT
  Age: 78 Year
  Sex: Female

DRUGS (22)
  1. TEPEZZA [Suspect]
     Active Substance: TEPROTUMUMAB-TRBW
     Indication: Graves^ disease
     Dosage: 631 MILLIGRAM
     Route: 040
     Dates: start: 20211122, end: 20211122
  2. TEPEZZA [Suspect]
     Active Substance: TEPROTUMUMAB-TRBW
     Indication: Endocrine ophthalmopathy
     Dosage: 1180 MILLIGRAM
     Route: 040
     Dates: start: 20211213, end: 20211213
  3. TEPEZZA [Suspect]
     Active Substance: TEPROTUMUMAB-TRBW
     Dosage: 1262 MILLIGRAM
     Route: 040
     Dates: start: 20220103, end: 20220103
  4. TEPEZZA [Suspect]
     Active Substance: TEPROTUMUMAB-TRBW
     Dosage: 1262 MILLIGRAM
     Route: 040
     Dates: start: 20220124
  5. TEPEZZA [Suspect]
     Active Substance: TEPROTUMUMAB-TRBW
     Dosage: 1262 MILLIGRAM
     Route: 040
     Dates: start: 20220214, end: 20220214
  6. TEPEZZA [Suspect]
     Active Substance: TEPROTUMUMAB-TRBW
     Dosage: 1240 MILLIGRAM
     Route: 040
     Dates: start: 20220307, end: 20220307
  7. TEPEZZA [Suspect]
     Active Substance: TEPROTUMUMAB-TRBW
     Dosage: 1240 MILLIGRAM (SEVENTH INFUSION)
     Route: 040
     Dates: start: 20220328
  8. TEPEZZA [Suspect]
     Active Substance: TEPROTUMUMAB-TRBW
     Dosage: 1240 MILLIGRAM (LAST INFUSION)
     Route: 040
     Dates: start: 20220418, end: 20220418
  9. AMLODIPINE [Concomitant]
     Active Substance: AMLODIPINE BESYLATE
     Indication: Blood pressure measurement
     Dosage: 10 MILLIGRAM, QD
     Route: 048
  10. VITAMIN C [Concomitant]
     Active Substance: ASCORBIC ACID
     Dosage: 1000 MILLIGRAM, QD
     Route: 048
  11. CALCIUM CARBONATE [Concomitant]
     Active Substance: CALCIUM CARBONATE
     Dosage: 600 MILLIGRAM, BID (ELEMENTAL CA 240)
     Route: 048
  12. VITAMIN B12 [Concomitant]
     Active Substance: CYANOCOBALAMIN
     Dosage: 1000 MILLIGRAM, QD
     Route: 048
  13. LOSARTAN [Concomitant]
     Active Substance: LOSARTAN
     Dosage: 50 MILLIGRAM, QD
     Route: 048
  14. LOSARTAN [Concomitant]
     Active Substance: LOSARTAN
     Dosage: 10 MILLIGRAM
     Route: 065
  15. LOSARTAN [Concomitant]
     Active Substance: LOSARTAN
     Dosage: 25 MILLIGRAM
     Route: 065
  16. METHIMAZOLE [Concomitant]
     Active Substance: METHIMAZOLE
     Dosage: 10 MILLIGRAM (EVERY OTHER DAY)
     Route: 048
  17. SIMVASTATIN [Concomitant]
     Active Substance: SIMVASTATIN
     Indication: Blood cholesterol
     Dosage: 20 MILLIGRAM, QD (EVERY NIGHT AT BEDTIME)
     Route: 048
  18. VITAMIN E [Concomitant]
     Active Substance: .ALPHA.-TOCOPHEROL
     Dosage: 1000 INTERNATIONAL UNIT, QD
     Route: 048
  19. SODIUM CHLORIDE [Concomitant]
     Active Substance: SODIUM CHLORIDE
     Dosage: UNK
     Route: 065
  20. TAPAZOLE [Concomitant]
     Active Substance: METHIMAZOLE
     Dosage: UNK 1/ 2 TABLET EVERY OTHER DAY
     Route: 065
  21. VITAMIN B COMPLEX [Concomitant]
     Active Substance: CYANOCOBALAMIN\DEXPANTHENOL\NIACINAMIDE\PYRIDOXINE HYDROCHLORIDE\RIBOFLAVIN 5^-PHOSPHATE SODIUM\THIA
     Dosage: UNK
     Route: 065
  22. SODIUM CHLORIDE [Concomitant]
     Active Substance: SODIUM CHLORIDE
     Dosage: UNK
     Route: 065

REACTIONS (44)
  - Deafness neurosensory [Not Recovered/Not Resolved]
  - Endocrine ophthalmopathy [Unknown]
  - Graves^ disease [Unknown]
  - Cranial nerve paralysis [Unknown]
  - Arrhythmia [Unknown]
  - Pulmonary congestion [Unknown]
  - Aortic arteriosclerosis [Unknown]
  - Pulmonary hypertension [Unknown]
  - Emotional distress [Unknown]
  - Anxiety [Unknown]
  - Product use complaint [Unknown]
  - Carpal tunnel syndrome [Not Recovered/Not Resolved]
  - Thoracic outlet syndrome [Unknown]
  - Tendonitis [Not Recovered/Not Resolved]
  - Cerebrovascular disorder [Unknown]
  - Impaired fasting glucose [Unknown]
  - Heart rate irregular [Unknown]
  - Oedema peripheral [Unknown]
  - Left ventricular hypertrophy [Unknown]
  - Osteopenia [Unknown]
  - Pain in extremity [Unknown]
  - Paraesthesia [Unknown]
  - Hypoaesthesia [Unknown]
  - Weight decreased [Unknown]
  - Cardiomegaly [Unknown]
  - Monocyte count increased [Unknown]
  - Bone density abnormal [Unknown]
  - Blood glucose increased [Unknown]
  - Blood cholesterol decreased [Unknown]
  - Thyroxine free increased [Unknown]
  - Blood thyroid stimulating hormone decreased [Unknown]
  - Dizziness [Unknown]
  - Vertigo [Unknown]
  - Localised oedema [Unknown]
  - Blood pressure systolic increased [Unknown]
  - Fear [Unknown]
  - Cardiac disorder [Unknown]
  - Cardiac hypertrophy [Unknown]
  - Pyrexia [Unknown]
  - Cough [Unknown]
  - Sneezing [Unknown]
  - Arthralgia [Unknown]
  - Brachial plexopathy [Unknown]
  - Myalgia [Unknown]

NARRATIVE: CASE EVENT DATE: 20230125
